FAERS Safety Report 8139222-5 (Version None)
Quarter: 2012Q1

REPORT INFORMATION
  Report Type: 
  Country: None (occurrence: None)
  Receive Date: 20120215
  Receipt Date: 20120208
  Transmission Date: 20120608
  Serious: Yes (Other)
  Sender: FDA-Public Use
  Company Number: US-PFIZER INC-2012035628

PATIENT
  Age: 31 Year
  Sex: Male

DRUGS (5)
  1. TESTOSTERONE CYPIONATE [Suspect]
     Dosage: WEEKLY INJECTIONS
  2. PRIMABOLAN [Suspect]
  3. SOMATROPIN [Suspect]
  4. CLOMIPHENE CITRATE [Suspect]
     Dosage: UNK
  5. TESTOSTERONE CYPIONATE [Suspect]
     Dosage: DAILY INJECTIONS

REACTIONS (13)
  - INTENTIONAL DRUG MISUSE [None]
  - CHEST DISCOMFORT [None]
  - DYSPNOEA [None]
  - ANXIETY [None]
  - DYSLIPIDAEMIA [None]
  - ABDOMINAL DISCOMFORT [None]
  - LEFT VENTRICULAR HYPERTROPHY [None]
  - MUSCLE MASS [None]
  - FLUSHING [None]
  - HYPERTENSION [None]
  - EJECTION FRACTION DECREASED [None]
  - GYNAECOMASTIA [None]
  - PALPITATIONS [None]
